FAERS Safety Report 9617265 (Version 2)
Quarter: 2013Q4

REPORT INFORMATION
  Report Type: Spontaneous
  Country: IT (occurrence: IT)
  Receive Date: 20131011
  Receipt Date: 20131024
  Transmission Date: 20140711
  Serious: Yes (Life-Threatening)
  Sender: FDA-Public Use
  Company Number: IT-TEVA-436301ISR

PATIENT
  Age: 69 Year
  Sex: Male

DRUGS (4)
  1. PANTOPRAZOLO 40 MG [Suspect]
     Indication: DUODENAL ULCER
     Dosage: 80 MILLIGRAM DAILY; GASTRO-RESISTANT TABLET
     Route: 048
  2. AMOXICILLINA [Concomitant]
     Dosage: 2 GRAM DAILY;
     Dates: start: 20130830
  3. CLARITROMICINA [Concomitant]
     Dosage: 1000 MILLIGRAM DAILY;
     Dates: start: 20130830
  4. ENOXAPARINA [Concomitant]
     Dosage: 200 IU/KG DAILY;

REACTIONS (2)
  - Renal failure acute [Recovering/Resolving]
  - Renal tubular necrosis [Recovering/Resolving]
